FAERS Safety Report 12326433 (Version 2)
Quarter: 2016Q2

REPORT INFORMATION
  Report Type: Spontaneous
  Country: AE (occurrence: AE)
  Receive Date: 20160503
  Receipt Date: 20160512
  Transmission Date: 20160815
  Serious: Yes (Other)
  Sender: FDA-Public Use
  Company Number: PHHY2016AE059689

PATIENT
  Age: 77 Year
  Sex: Female

DRUGS (2)
  1. AFINITOR [Suspect]
     Active Substance: EVEROLIMUS
     Indication: METASTASES TO BONE
     Dosage: 5 MG, UNK
     Route: 065
     Dates: end: 201603
  2. AFINITOR [Suspect]
     Active Substance: EVEROLIMUS
     Indication: DISEASE PROGRESSION
     Dosage: 10 MG, UNK
     Route: 065
     Dates: start: 201511

REACTIONS (2)
  - Angina pectoris [Recovered/Resolved]
  - Angina pectoris [Unknown]
